FAERS Safety Report 10168506 (Version 1)
Quarter: 2014Q2

REPORT INFORMATION
  Report Type: Report from Study
  Country: US (occurrence: US)
  Receive Date: 20140513
  Receipt Date: 20140513
  Transmission Date: 20141212
  Serious: Yes (Hospitalization)
  Sender: FDA-Public Use
  Company Number: US-BIOGENIDEC-2014BI043862

PATIENT
  Sex: Female

DRUGS (1)
  1. AVONEX [Suspect]
     Indication: MULTIPLE SCLEROSIS
     Route: 030
     Dates: start: 20100319, end: 20120510

REACTIONS (5)
  - Gait disturbance [Unknown]
  - Central nervous system lesion [Unknown]
  - Endocrine disorder [Unknown]
  - Multiple sclerosis [Unknown]
  - Mobility decreased [Unknown]
